FAERS Safety Report 24783069 (Version 1)
Quarter: 2024Q4

REPORT INFORMATION
  Report Type: Spontaneous
  Country: CN (occurrence: CN)
  Receive Date: 20241227
  Receipt Date: 20241227
  Transmission Date: 20250114
  Serious: Yes (Other)
  Sender: BAYER HEALTHCARE PHARMACEUTICALS INC.
  Company Number: CN-BAYER-2024A182107

PATIENT
  Age: 58 Year
  Sex: Female
  Weight: 52.3 kg

DRUGS (2)
  1. ULTRAVIST [Suspect]
     Active Substance: IOPROMIDE
     Indication: Computerised tomogram head
     Dosage: 60 ML, ONCE
     Route: 042
     Dates: start: 20241223, end: 20241223
  2. ULTRAVIST [Suspect]
     Active Substance: IOPROMIDE
     Indication: Computerised tomogram neck

REACTIONS (4)
  - Dyspnoea [Recovering/Resolving]
  - Chest discomfort [Recovering/Resolving]
  - Tachypnoea [Recovering/Resolving]
  - Muscle rigidity [Recovering/Resolving]

NARRATIVE: CASE EVENT DATE: 20241223
